FAERS Safety Report 23704803 (Version 1)
Quarter: 2024Q2

REPORT INFORMATION
  Report Type: Other
  Country: CA (occurrence: None)
  Receive Date: 20240404
  Receipt Date: 20240404
  Transmission Date: 20240715
  Serious: Yes (Other)
  Sender: FDA-Public Use
  Company Number: CA-ROCHE-3492036

PATIENT
  Age: 64 Year
  Sex: Male

DRUGS (1)
  1. OCREVUS [Suspect]
     Active Substance: OCRELIZUMAB
     Indication: Relapsing-remitting multiple sclerosis
     Dosage: THEN 600 MG EVERY 6 MONTH.
     Route: 042
     Dates: start: 20190319

REACTIONS (2)
  - Prostate cancer [Not Recovered/Not Resolved]
  - Metastases to bone [Not Recovered/Not Resolved]

NARRATIVE: CASE EVENT DATE: 20231201
